FAERS Safety Report 8060644-5 (Version None)
Quarter: 2012Q1

REPORT INFORMATION
  Report Type: 
  Country: None (occurrence: None)
  Receive Date: 20120119
  Receipt Date: 20120119
  Transmission Date: 20120608
  Serious: Yes (Hospitalization, Other)
  Sender: FDA-Public Use
  Company Number: None

PATIENT
  Age: 64 Year
  Sex: Male
  Weight: 81.6475 kg

DRUGS (1)
  1. CIPROFLOXACIN [Suspect]
     Indication: BIOPSY PROSTATE
     Dosage: 1 TABLET TWICE PER DAY MOUTH
     Route: 048
     Dates: start: 20111209, end: 20111219

REACTIONS (9)
  - OTOTOXICITY [None]
  - IMPAIRED DRIVING ABILITY [None]
  - VERTIGO [None]
  - QUALITY OF LIFE DECREASED [None]
  - DEAFNESS UNILATERAL [None]
  - SOCIAL PROBLEM [None]
  - VOMITING [None]
  - BALANCE DISORDER [None]
  - ACTIVITIES OF DAILY LIVING IMPAIRED [None]
